FAERS Safety Report 19391092 (Version 1)
Quarter: 2021Q2

REPORT INFORMATION
  Report Type: Spontaneous
  Country: DE (occurrence: DE)
  Receive Date: 20210608
  Receipt Date: 20210608
  Transmission Date: 20210717
  Serious: Yes (Other)
  Sender: FDA-Public Use
  Company Number: DE-PFIZER INC-2021597357

PATIENT

DRUGS (3)
  1. CYTOTEC [Suspect]
     Active Substance: MISOPROSTOL
     Indication: LABOUR INDUCTION
  2. CYTOTEC [Suspect]
     Active Substance: MISOPROSTOL
     Indication: PROLONGED PREGNANCY
  3. CYTOTEC [Suspect]
     Active Substance: MISOPROSTOL
     Indication: AMNIOTIC FLUID VOLUME DECREASED
     Dosage: 1.5 DF
     Route: 064
     Dates: start: 20120615, end: 20120617

REACTIONS (4)
  - Hypotonia neonatal [Recovered/Resolved]
  - Foetal exposure during delivery [Recovered/Resolved]
  - Heart sounds abnormal [Recovered/Resolved]
  - Cyanosis neonatal [Recovered/Resolved]

NARRATIVE: CASE EVENT DATE: 201206
